FAERS Safety Report 25101192 (Version 1)
Quarter: 2025Q1

REPORT INFORMATION
  Report Type: Spontaneous
  Country: DE (occurrence: DE)
  Receive Date: 20250320
  Receipt Date: 20250320
  Transmission Date: 20250408
  Serious: Yes (Hospitalization, Other)
  Sender: BAYER HEALTHCARE PHARMACEUTICALS INC.
  Company Number: DE-BAYER-2025A030490

PATIENT
  Sex: Female

DRUGS (4)
  1. ADEMPAS [Suspect]
     Active Substance: RIOCIGUAT
     Indication: Pulmonary arterial hypertension
  2. REMODULIN [Suspect]
     Active Substance: TREPROSTINIL
     Route: 042
  3. AMBRISENTAN [Suspect]
     Active Substance: AMBRISENTAN
  4. SOTATERCEPT [Concomitant]
     Active Substance: SOTATERCEPT

REACTIONS (3)
  - Pulmonary hypertension [None]
  - Peripheral vascular disorder [None]
  - Fluid retention [None]
